FAERS Safety Report 8115529-2 (Version None)
Quarter: 2012Q1

REPORT INFORMATION
  Report Type: 
  Country: None (occurrence: None)
  Receive Date: 20120206
  Receipt Date: 20120124
  Transmission Date: 20120608
  Serious: Yes (Other)
  Sender: FDA-Public Use
  Company Number: JP-ELI_LILLY_AND_COMPANY-JP201106003518

PATIENT
  Age: 83 Year
  Sex: Female

DRUGS (3)
  1. HOLIN [Concomitant]
     Route: 048
  2. FORTEO [Suspect]
     Dosage: UNK UNK, EACH MORNING
     Route: 058
     Dates: start: 20110510
  3. INSULIN [Concomitant]
     Indication: DIABETES MELLITUS
     Dosage: UNK

REACTIONS (4)
  - JOINT CREPITATION [None]
  - DIABETIC NEUROPATHY [None]
  - VAGINAL DISCHARGE [None]
  - BACK PAIN [None]
